FAERS Safety Report 11767647 (Version 8)
Quarter: 2016Q4

REPORT INFORMATION
  Report Type: Report from Study
  Country: LB (occurrence: LB)
  Receive Date: 20151123
  Receipt Date: 20161226
  Transmission Date: 20170206
  Serious: Yes (Hospitalization)
  Sender: FDA-Public Use
  Company Number: PHHY2014LB122924

PATIENT
  Age: 23 Year
  Sex: Female

DRUGS (5)
  1. SCOPINAL [Concomitant]
     Indication: PRODUCT USED FOR UNKNOWN INDICATION
     Dosage: UNK UNK, PRN
     Route: 048
  2. OPTIVE [Concomitant]
     Active Substance: CARBOXYMETHYLCELLULOSE SODIUM\GLYCERIN
     Indication: PRODUCT USED FOR UNKNOWN INDICATION
     Route: 065
  3. TASIGNA [Suspect]
     Active Substance: NILOTINIB
     Indication: CHRONIC MYELOID LEUKAEMIA
     Dosage: 600 MG, QD (TASIGNA 150)
     Route: 048
     Dates: start: 201404
  4. TASIGNA [Suspect]
     Active Substance: NILOTINIB
     Dosage: 600 MG, QD (TASIGNA 200)
     Route: 048
     Dates: start: 201606
  5. NORMIX [Concomitant]
     Active Substance: RIFAXIMIN
     Indication: PRODUCT USED FOR UNKNOWN INDICATION
     Dosage: 1 DF, Q8H
     Route: 048

REACTIONS (33)
  - Back pain [Recovering/Resolving]
  - Dry eye [Recovering/Resolving]
  - Pyrexia [Unknown]
  - Dyspnoea [Not Recovered/Not Resolved]
  - Tremor [Not Recovered/Not Resolved]
  - Chills [Not Recovered/Not Resolved]
  - Abdominal pain [Unknown]
  - Face oedema [Recovering/Resolving]
  - Wound [Unknown]
  - Ocular hyperaemia [Recovering/Resolving]
  - Ovarian cyst [Recovering/Resolving]
  - Haemoptysis [Recovered/Resolved]
  - Dizziness [Recovered/Resolved]
  - Headache [Recovering/Resolving]
  - Influenza [Unknown]
  - Pelvic pain [Unknown]
  - Hypersensitivity [Recovering/Resolving]
  - Alopecia [Not Recovered/Not Resolved]
  - Cough [Unknown]
  - Dysmenorrhoea [Recovered/Resolved]
  - Thrombocytopenia [Unknown]
  - Nausea [Recovered/Resolved]
  - Blood iron decreased [Unknown]
  - Dry skin [Unknown]
  - Oedema peripheral [Recovered/Resolved]
  - Cytogenetic abnormality [Unknown]
  - Granuloma skin [Recovering/Resolving]
  - Vomiting [Recovering/Resolving]
  - Dizziness [Recovering/Resolving]
  - Rash [Unknown]
  - Furuncle [Unknown]
  - Erythema [Not Recovered/Not Resolved]
  - Inappropriate schedule of drug administration [Unknown]

NARRATIVE: CASE EVENT DATE: 201409
